FAERS Safety Report 21530594 (Version 2)
Quarter: 2022Q4

REPORT INFORMATION
  Report Type: Spontaneous
  Country: US (occurrence: US)
  Receive Date: 20221031
  Receipt Date: 20221206
  Transmission Date: 20230113
  Serious: No
  Sender: FDA-Public Use
  Company Number: US-JNJFOC-20221032972

PATIENT
  Age: 66 Year
  Sex: Female

DRUGS (7)
  1. WOMENS ROGAINE UNSCENTED [Suspect]
     Active Substance: MINOXIDIL
     Indication: Alopecia
     Dosage: DOSE: AMOUNT WAS NOT MEASURED, IT IS APPLIED TO ALL AFFECTED PARTS ON THE SCALP JUST ONCE
     Route: 065
     Dates: start: 20220920
  2. ERGOCALCIFEROL [Concomitant]
     Active Substance: ERGOCALCIFEROL
     Indication: Vitamin D deficiency
     Route: 065
     Dates: start: 2002
  3. VITAMIN B12 [Concomitant]
     Active Substance: CYANOCOBALAMIN
     Indication: Vitamin B12 deficiency
     Route: 065
     Dates: start: 2002
  4. GABAPENTIN [Concomitant]
     Active Substance: GABAPENTIN
     Indication: Restless legs syndrome
     Route: 065
     Dates: start: 2012
  5. LORAZEPAM [Concomitant]
     Active Substance: LORAZEPAM
     Indication: Anxiety
     Route: 065
     Dates: start: 2015
  6. REMICADE [Concomitant]
     Active Substance: INFLIXIMAB
     Indication: Crohn^s disease
     Route: 065
     Dates: start: 2002
  7. CALCIUM\CHOLECALCIFEROL [Concomitant]
     Active Substance: CALCIUM\CHOLECALCIFEROL
     Indication: Bone disorder
     Route: 065
     Dates: start: 2012

REACTIONS (4)
  - Alopecia [Not Recovered/Not Resolved]
  - Incorrect dose administered [Unknown]
  - Poor quality product administered [Unknown]
  - Product formulation issue [Unknown]

NARRATIVE: CASE EVENT DATE: 20220101
